FAERS Safety Report 17817656 (Version 1)
Quarter: 2020Q2

REPORT INFORMATION
  Report Type: Spontaneous
  Country: CA (occurrence: CA)
  Receive Date: 20200522
  Receipt Date: 20200522
  Transmission Date: 20200714
  Serious: Yes (Other)
  Sender: FDA-Public Use
  Company Number: CA-TEVA-2020-CA-1238432

PATIENT
  Age: 53 Year
  Sex: Male

DRUGS (1)
  1. DOXORUBICIN HYDROCHLORIDE. [Suspect]
     Active Substance: DOXORUBICIN HYDROCHLORIDE
     Indication: OSTEITIS DEFORMANS
     Route: 065

REACTIONS (4)
  - Off label use [Unknown]
  - Impaired work ability [Unknown]
  - Product use in unapproved indication [Unknown]
  - Febrile neutropenia [Unknown]
